FAERS Safety Report 12987021 (Version 2)
Quarter: 2016Q4

REPORT INFORMATION
  Report Type: Spontaneous
  Country: US (occurrence: US)
  Receive Date: 20161130
  Receipt Date: 20161213
  Transmission Date: 20170207
  Serious: Yes (Life-Threatening, Other)
  Sender: FDA-Public Use
  Company Number: US-DRREDDYS-USA/USA/16/0085200

PATIENT
  Age: 2 Year

DRUGS (1)
  1. ONDANSETRON [Suspect]
     Active Substance: ONDANSETRON
     Indication: PRODUCT USED FOR UNKNOWN INDICATION
     Dosage: AN AVERAGE ADMINISTERED DOSE OF 0.1 MG/KG/DOSE (RANGE 0.07- 0.15 MG/KG/DOSE).
     Route: 065

REACTIONS (2)
  - Ventricular arrhythmia [Unknown]
  - Calcium ionised decreased [Unknown]
